FAERS Safety Report 4612995-1 (Version None)
Quarter: 2005Q1

REPORT INFORMATION
  Report Type: 
  Country: None (occurrence: None)
  Receive Date: 20050318
  Receipt Date: 20050222
  Transmission Date: 20050727
  Serious: Yes (Other)
  Sender: FDA-Public Use
  Company Number: ZA-ABBOTT-05P-143-0291747-00

PATIENT
  Sex: Male

DRUGS (2)
  1. VALPROIC ACID [Suspect]
     Indication: SIMPLE PARTIAL SEIZURES
     Route: 048
     Dates: start: 20050116
  2. VALPROIC ACID [Suspect]
     Route: 048
     Dates: start: 20050101, end: 20050124

REACTIONS (4)
  - CONDITION AGGRAVATED [None]
  - GRAND MAL CONVULSION [None]
  - HYPERSOMNIA [None]
  - PETIT MAL EPILEPSY [None]
